FAERS Safety Report 24575894 (Version 3)
Quarter: 2024Q4

REPORT INFORMATION
  Report Type: Report from Study
  Country: CA (occurrence: CA)
  Receive Date: 20241104
  Receipt Date: 20241114
  Transmission Date: 20250115
  Serious: Yes (Other)
  Sender: ABBVIE
  Company Number: CA-ABBVIE-5985927

PATIENT
  Age: 52 Year
  Sex: Male

DRUGS (2)
  1. SKYRIZI [Suspect]
     Active Substance: RISANKIZUMAB-RZAA
     Indication: Psoriasis
     Route: 058
     Dates: start: 20200305, end: 202302
  2. SKYRIZI [Suspect]
     Active Substance: RISANKIZUMAB-RZAA
     Route: 058
     Dates: start: 2023

REACTIONS (9)
  - Shoulder fracture [Unknown]
  - Wrist fracture [Unknown]
  - Limb injury [Unknown]
  - Road traffic accident [Unknown]
  - Concussion [Unknown]
  - Pain [Unknown]
  - Dizziness [Unknown]
  - Joint swelling [Unknown]
  - Psoriasis [Unknown]

NARRATIVE: CASE EVENT DATE: 20230101
